FAERS Safety Report 7557768-5 (Version None)
Quarter: 2011Q2

REPORT INFORMATION
  Report Type: 
  Country: None (occurrence: None)
  Receive Date: 20110620
  Receipt Date: 20110616
  Transmission Date: 20111010
  Serious: Yes (Hospitalization)
  Sender: FDA-Public Use
  Company Number: IE-AMGEN-IRLSP2011030808

PATIENT
  Sex: Female

DRUGS (5)
  1. NEULASTA [Suspect]
     Indication: CHEMOTHERAPY
     Dosage: 6 MG, 4 TIMES/WK
     Route: 058
     Dates: start: 20110304, end: 20110101
  2. VALTREX [Concomitant]
  3. MOTILIUM                           /00498201/ [Concomitant]
  4. ALLOPURINOL [Concomitant]
  5. ANTINEOPLASTIC AGENTS [Concomitant]

REACTIONS (1)
  - PNEUMONIA [None]
